FAERS Safety Report 8109520 (Version 3)
Quarter: 2012Q4

REPORT INFORMATION
  Report Type: Spontaneous
  Country: DK (occurrence: None)
  Receive Date: 20110817
  Receipt Date: 20121003
  Transmission Date: 20130627
  Serious: Yes (Death, Hospitalization)
  Sender: FDA-Public Use
  Company Number: 2011MA011548

PATIENT
  Age: 68 Year
  Sex: Female

DRUGS (8)
  1. DICLOFENAC SODIUM [Suspect]
     Indication: OSTEOARTHRITIS
     Dosage: 50 MG; TID
     Dates: start: 20080708, end: 20110531
  2. AMITRIPTYLINE HYDROCHLORIDE [Concomitant]
  3. GABAPENTIN [Concomitant]
  4. ACETAMINOPHEN AND CODEINE PHOSPHATE [Concomitant]
  5. TRAMADOL HYDROCHLORIDE [Concomitant]
  6. ALENDRONIC ACID [Concomitant]
  7. TRIAMCINOLONE [Concomitant]
  8. ESTRADIOL [Concomitant]

REACTIONS (10)
  - Colitis ischaemic [None]
  - Enteritis [None]
  - Fatigue [None]
  - Haematochezia [None]
  - Abdominal pain [None]
  - Malaise [None]
  - Abdominal rigidity [None]
  - Blood sodium decreased [None]
  - Chronic obstructive pulmonary disease [None]
  - Intestinal perforation [None]
